FAERS Safety Report 4840767-1 (Version None)
Quarter: 2005Q4

REPORT INFORMATION
  Report Type: 
  Country: None (occurrence: None)
  Receive Date: 20051027
  Receipt Date: 20050316
  Transmission Date: 20060501
  Serious: Yes (Other)
  Sender: FDA-Public Use
  Company Number: HQWYE178018MAR05

PATIENT
  Age: 52 Year
  Sex: Female
  Weight: 56.75 kg

DRUGS (1)
  1. PREMARIN [Suspect]
     Indication: ARTIFICIAL MENOPAUSE
     Dosage: 0.625MG DAILY, ORAL
     Route: 048
     Dates: start: 19940101, end: 19980101

REACTIONS (9)
  - AORTIC VALVE INCOMPETENCE [None]
  - BREAST CANCER [None]
  - BREAST MICROCALCIFICATION [None]
  - BREAST PAIN [None]
  - CARDIAC MURMUR [None]
  - FATIGUE [None]
  - MUSCLE SPASMS [None]
  - MUSCULOSKELETAL CHEST PAIN [None]
  - TRICUSPID VALVE INCOMPETENCE [None]
